FAERS Safety Report 6241678-X (Version None)
Quarter: 2009Q2

REPORT INFORMATION
  Report Type: 
  Country: None (occurrence: None)
  Receive Date: 20090623
  Receipt Date: 20090610
  Transmission Date: 20091009
  Serious: Yes (Hospitalization, Other)
  Sender: FDA-Public Use
  Company Number: US-ELI_LILLY_AND_COMPANY-US200906002893

PATIENT
  Sex: Female

DRUGS (1)
  1. STRATTERA [Suspect]
     Dosage: UNK, UNKNOWN
     Route: 065

REACTIONS (3)
  - GALLBLADDER OPERATION [None]
  - HEPATIC ENZYME INCREASED [None]
  - HEPATITIS [None]
